FAERS Safety Report 23438213 (Version 1)
Quarter: 2024Q1

REPORT INFORMATION
  Report Type: Spontaneous
  Country: US (occurrence: US)
  Receive Date: 20240124
  Receipt Date: 20240124
  Transmission Date: 20240410
  Serious: No
  Sender: FDA-Public Use
  Company Number: US-PERRIGO-23US008504

PATIENT

DRUGS (3)
  1. IBUPROFEN AND DIPHENHYDRAMINE CITRATE [Suspect]
     Active Substance: DIPHENHYDRAMINE CITRATE\IBUPROFEN
     Indication: Insomnia
     Dosage: UNKNOWN, UNKNOWN
     Route: 048
     Dates: start: 202307
  2. IBUPROFEN AND DIPHENHYDRAMINE CITRATE [Suspect]
     Active Substance: DIPHENHYDRAMINE CITRATE\IBUPROFEN
     Indication: Back pain
  3. IBUPROFEN AND DIPHENHYDRAMINE CITRATE [Suspect]
     Active Substance: DIPHENHYDRAMINE CITRATE\IBUPROFEN
     Indication: Pain

REACTIONS (1)
  - Therapeutic product effect decreased [Unknown]

NARRATIVE: CASE EVENT DATE: 20230701
